FAERS Safety Report 6120700-5 (Version None)
Quarter: 2009Q1

REPORT INFORMATION
  Report Type: 
  Country: None (occurrence: None)
  Receive Date: 20090317
  Receipt Date: 20090306
  Transmission Date: 20090719
  Serious: Yes (Other)
  Sender: FDA-Public Use
  Company Number: US-ALLERGAN-0902421US

PATIENT
  Sex: Female

DRUGS (2)
  1. BOTOX [Suspect]
     Indication: PAIN
     Dosage: 100 UNITS, SINGLE
     Route: 030
     Dates: start: 20080904, end: 20080904
  2. BOTOX [Suspect]
     Indication: NERVE INJURY

REACTIONS (6)
  - ARTHRALGIA [None]
  - CATARACT [None]
  - EAR PAIN [None]
  - HYPOAESTHESIA ORAL [None]
  - PHOTOPHOBIA [None]
  - VISION BLURRED [None]
